FAERS Safety Report 4432139-9 (Version None)
Quarter: 2004Q3

REPORT INFORMATION
  Report Type: 
  Country: None (occurrence: None)
  Receive Date: 20040819
  Receipt Date: 20040806
  Transmission Date: 20050211
  Serious: Yes (Hospitalization)
  Sender: FDA-Public Use
  Company Number: HQWYE108809AUG04

PATIENT
  Age: 10 Year
  Sex: Female

DRUGS (2)
  1. CHILDREN'S ADVIL [Suspect]
     Indication: PHARYNGITIS
     Dosage: ^MAXIMUM OF 30 MG/KG/DAY, ORAL
     Route: 048
  2. CHILDREN'S ADVIL [Suspect]
     Indication: PYREXIA
     Dosage: ^MAXIMUM OF 30 MG/KG/DAY, ORAL
     Route: 048

REACTIONS (5)
  - CHOLESTASIS [None]
  - CONDITION AGGRAVATED [None]
  - PYREXIA [None]
  - STEVENS-JOHNSON SYNDROME [None]
  - VANISHING BILE DUCT SYNDROME [None]
